FAERS Safety Report 18469947 (Version 1)
Quarter: 2020Q4

REPORT INFORMATION
  Report Type: Spontaneous
  Country: US (occurrence: US)
  Receive Date: 20201105
  Receipt Date: 20201105
  Transmission Date: 20210114
  Serious: Yes (Death)
  Sender: FDA-Public Use
  Company Number: US-PURDUE-USA-2020-0172985

PATIENT
  Sex: Female

DRUGS (1)
  1. OXYCONTIN [Suspect]
     Active Substance: OXYCODONE HYDROCHLORIDE
     Indication: UPPER LIMB FRACTURE
     Dosage: UNK
     Route: 048

REACTIONS (3)
  - Sepsis [Fatal]
  - Constipation [Unknown]
  - Intestinal obstruction [Unknown]
